FAERS Safety Report 12865507 (Version 1)
Quarter: 2016Q4

REPORT INFORMATION
  Report Type: Spontaneous
  Country: US (occurrence: US)
  Receive Date: 20161020
  Receipt Date: 20161020
  Transmission Date: 20170207
  Serious: No
  Sender: FDA-Public Use
  Company Number: None

PATIENT

DRUGS (2)
  1. CISATRACURIUM BESYLATE SANDOZ, INC [Suspect]
     Active Substance: CISATRACURIUM BESYLATE
     Dosage: INJECTABLE  INTRAVENOUS 200 MG/20ML SINGLE DOSE VIAL
     Route: 042
  2. CISATRACURIUM BESYLATE NOVAPLUS [Suspect]
     Active Substance: CISATRACURIUM BESYLATE
     Dosage: INJECTABLE  INTRAVENOUS  20 MG/10ML  MULTIPLE DOSE
     Route: 042

REACTIONS (3)
  - Incorrect dose administered [None]
  - Drug dispensing error [None]
  - Delayed recovery from anaesthesia [None]
